FAERS Safety Report 5717103-1 (Version None)
Quarter: 2008Q2

REPORT INFORMATION
  Report Type: 
  Country: None (occurrence: None)
  Receive Date: 20080424
  Receipt Date: 20080416
  Transmission Date: 20081010
  Serious: Yes (Other)
  Sender: FDA-Public Use
  Company Number: CA-PFIZER INC-2008029640

PATIENT
  Sex: Male

DRUGS (1)
  1. SUTENT [Suspect]
     Indication: METASTATIC RENAL CELL CARCINOMA
     Route: 048

REACTIONS (6)
  - BLOOD CREATININE INCREASED [None]
  - FACE OEDEMA [None]
  - HYPERSENSITIVITY [None]
  - NEPHROPATHY [None]
  - ORBITAL OEDEMA [None]
  - PROTEINURIA [None]
